FAERS Safety Report 13876409 (Version 2)
Quarter: 2017Q3

REPORT INFORMATION
  Report Type: Spontaneous
  Country: EG (occurrence: EG)
  Receive Date: 20170817
  Receipt Date: 20170926
  Transmission Date: 20171127
  Serious: Yes (Life-Threatening, Other)
  Sender: FDA-Public Use
  Company Number: EG-009507513-1708EGY005740

PATIENT
  Age: 24 Year
  Sex: Female

DRUGS (2)
  1. DIPROFOS [Suspect]
     Active Substance: BETAMETHASONE DIPROPIONATE\BETAMETHASONE SODIUM PHOSPHATE
     Indication: ALOPECIA
     Dosage: 0.5 SYRINGE PER 2 WEEKS
     Route: 026
     Dates: start: 20170101, end: 201704
  2. SODIUM CHLORIDE. [Concomitant]
     Active Substance: SODIUM CHLORIDE
     Dosage: UNK
     Route: 026
     Dates: start: 20170101, end: 201704

REACTIONS (3)
  - Fluid retention [None]
  - Hypoalbuminaemia [Recovering/Resolving]
  - Generalised oedema [None]

NARRATIVE: CASE EVENT DATE: 201704
